FAERS Safety Report 8266712-7 (Version None)
Quarter: 2012Q2

REPORT INFORMATION
  Report Type: 
  Country: None (occurrence: None)
  Receive Date: 20120409
  Receipt Date: 20120329
  Transmission Date: 20120825
  Serious: Yes (Death, Hospitalization)
  Sender: FDA-Public Use
  Company Number: US-BIOGENIDEC-2010BI033926

PATIENT
  Age: 45 Year
  Sex: Female

DRUGS (3)
  1. NORTRIPTYLINE HCL [Concomitant]
     Indication: TRIGEMINAL NEURALGIA
  2. TYSABRI [Suspect]
     Indication: MULTIPLE SCLEROSIS
     Route: 042
     Dates: start: 20070725, end: 20100907
  3. LYRICA [Concomitant]
     Indication: TRIGEMINAL NEURALGIA

REACTIONS (5)
  - IMMUNE RECONSTITUTION SYNDROME [None]
  - DEATH [None]
  - PROGRESSIVE MULTIFOCAL LEUKOENCEPHALOPATHY [None]
  - FALL [None]
  - FATIGUE [None]
